FAERS Safety Report 9169129 (Version 2)
Quarter: 2013Q2

REPORT INFORMATION
  Report Type: Spontaneous
  Country: JP (occurrence: JP)
  Receive Date: 20130318
  Receipt Date: 20130503
  Transmission Date: 20140414
  Serious: Yes (Hospitalization)
  Sender: FDA-Public Use
  Company Number: JP-GLAXOSMITHKLINE-B0874224A

PATIENT
  Age: 89 Year
  Sex: Female

DRUGS (7)
  1. VALTREX [Suspect]
     Indication: HERPES ZOSTER
     Dosage: 1000MG THREE TIMES PER DAY
     Route: 048
     Dates: start: 20130301, end: 20130305
  2. NU-LOTAN [Concomitant]
     Dosage: 50MG PER DAY
     Route: 048
  3. FLUITRAN [Concomitant]
     Dosage: 1MG PER DAY
     Route: 048
  4. BENZALIN [Concomitant]
     Dosage: 5MG PER DAY
     Route: 048
  5. LENDORMIN [Concomitant]
     Dosage: .25MG PER DAY
     Route: 048
  6. ALOSENN [Concomitant]
     Dosage: .5G THREE TIMES PER DAY
     Route: 048
  7. REBAMIPIDE [Concomitant]
     Route: 048

REACTIONS (8)
  - Altered state of consciousness [Recovered/Resolved]
  - Renal disorder [Recovered/Resolved]
  - Delirium [Recovering/Resolving]
  - Renal impairment [Recovered/Resolved]
  - Disorientation [Recovering/Resolving]
  - Dysarthria [Recovering/Resolving]
  - Depressed level of consciousness [Unknown]
  - Overdose [Unknown]
